FAERS Safety Report 15583001 (Version 2)
Quarter: 2018Q4

REPORT INFORMATION
  Report Type: Other
  Country: ES (occurrence: ES)
  Receive Date: 20181105
  Receipt Date: 20181109
  Transmission Date: 20190205
  Serious: Yes (Death, Other)
  Sender: FDA-Public Use
  Company Number: ES-APOTEX-2018AP023526

PATIENT
  Age: 82 Year
  Sex: Female

DRUGS (4)
  1. GALANTAMINE. [Interacting]
     Active Substance: GALANTAMINE
     Indication: PRODUCT USED FOR UNKNOWN INDICATION
     Dosage: 16 MG, 0-0-1
     Route: 048
     Dates: start: 20150101, end: 20170616
  2. METFORMIN [Interacting]
     Active Substance: METFORMIN HYDROCHLORIDE
     Indication: PRODUCT USED FOR UNKNOWN INDICATION
     Dosage: 0-1/2-1
     Route: 048
     Dates: start: 20150101, end: 20170616
  3. MEMANTINE. [Suspect]
     Active Substance: MEMANTINE
     Indication: PRODUCT USED FOR UNKNOWN INDICATION
     Dosage: 20 MG, 0-1-0
     Route: 048
     Dates: start: 20150101, end: 20170616
  4. LOSARTAN. [Concomitant]
     Active Substance: LOSARTAN
     Indication: PRODUCT USED FOR UNKNOWN INDICATION
     Dosage: 100 MG, QD
     Route: 048
     Dates: start: 20150101

REACTIONS (1)
  - Inappropriate antidiuretic hormone secretion [Fatal]

NARRATIVE: CASE EVENT DATE: 20170610
